FAERS Safety Report 15570086 (Version 1)
Quarter: 2018Q4

REPORT INFORMATION
  Report Type: Spontaneous
  Country: US (occurrence: US)
  Receive Date: 20181031
  Receipt Date: 20181031
  Transmission Date: 20190205
  Serious: Yes (Other)
  Sender: FDA-Public Use
  Company Number: US-GLENMARK PHARMACEUTICALS-2018GMK037998

PATIENT
  Age: 21 Year
  Sex: Male

DRUGS (33)
  1. DEXTROAMPHET SACCHARAT, AMPHET ASPARTATE, DEXTROAMPHET SULFATE AND AMPHET SULFAT [Suspect]
     Active Substance: AMPHETAMINE ASPARTATE\AMPHETAMINE SULFATE\DEXTROAMPHETAMINE SACCHARATE\DEXTROAMPHETAMINE SULFATE
     Dosage: 10 MG, OD (EXTENDED RELEASE, EVERY MORNING)
     Route: 065
  2. BUPROPION. [Suspect]
     Active Substance: BUPROPION
     Dosage: 300 MG, OD (EVERY MORNING)
     Route: 065
  3. BUSPIRONE [Suspect]
     Active Substance: BUSPIRONE HYDROCHLORIDE
     Dosage: 7.5 MG, TID (EVERY 8 HOURS)
     Route: 065
  4. BUSPIRONE [Suspect]
     Active Substance: BUSPIRONE HYDROCHLORIDE
     Dosage: 15 MG, OD
     Route: 065
  5. BUSPIRONE [Suspect]
     Active Substance: BUSPIRONE HYDROCHLORIDE
     Dosage: 7.5 MG, TID (EVERY 8 HOURS)
     Route: 065
  6. ESCITALOPRAM [Suspect]
     Active Substance: ESCITALOPRAM OXALATE
     Dosage: 10 MG, OD (EVERY MORNING)
     Route: 065
  7. DEXTROAMPHET SACCHARAT, AMPHET ASPARTATE, DEXTROAMPHET SULFATE AND AMPHET SULFAT [Suspect]
     Active Substance: AMPHETAMINE ASPARTATE\AMPHETAMINE SULFATE\DEXTROAMPHETAMINE SACCHARATE\DEXTROAMPHETAMINE SULFATE
     Indication: ATTENTION DEFICIT/HYPERACTIVITY DISORDER
     Dosage: 20 MG, OD (EXTENDED RELEASE, EVERY MORNING)
     Route: 065
  8. BUSPIRONE [Suspect]
     Active Substance: BUSPIRONE HYDROCHLORIDE
     Dosage: 2.5 MG, OD
     Route: 065
  9. ARIPIPRAZOLE. [Suspect]
     Active Substance: ARIPIPRAZOLE
     Indication: HYPERSEXUALITY
     Dosage: 4 MG, OD (EVERY BEDTIME)
     Route: 065
  10. BENZTROPINE MESYLATE. [Concomitant]
     Active Substance: BENZTROPINE MESYLATE
     Indication: AKATHISIA
     Dosage: 0.5 MG, BID (AS NECESSARY)
     Route: 065
  11. LAMOTRIGINE. [Suspect]
     Active Substance: LAMOTRIGINE
     Indication: BIPOLAR DISORDER
     Dosage: 150 MG, QD
     Route: 065
  12. ESCITALOPRAM [Suspect]
     Active Substance: ESCITALOPRAM OXALATE
     Indication: MAJOR DEPRESSION
     Dosage: 5 MG, OD (EVERY MORNING)
     Route: 065
  13. LORAZEPAM. [Suspect]
     Active Substance: LORAZEPAM
     Dosage: 1 MG, TID (AS NECESSARY)
     Route: 065
  14. BUSPIRONE [Suspect]
     Active Substance: BUSPIRONE HYDROCHLORIDE
     Dosage: 15 MG, TID (EVERY 8 HOURS)
     Route: 065
  15. BUSPIRONE [Suspect]
     Active Substance: BUSPIRONE HYDROCHLORIDE
     Dosage: 20 MG, OD
     Route: 065
  16. LORAZEPAM. [Suspect]
     Active Substance: LORAZEPAM
     Indication: MAJOR DEPRESSION
     Dosage: 0.5 MG, TID (AS NECESSARY)
     Route: 065
  17. BUSPIRONE [Suspect]
     Active Substance: BUSPIRONE HYDROCHLORIDE
     Dosage: 22.5 MG, OD
     Route: 065
  18. ESCITALOPRAM [Suspect]
     Active Substance: ESCITALOPRAM OXALATE
     Dosage: 20 MG, OD
     Route: 065
  19. ESCITALOPRAM [Suspect]
     Active Substance: ESCITALOPRAM OXALATE
     Dosage: 15 MG, OD (EVERY MORNING)
     Route: 065
  20. BUSPIRONE [Suspect]
     Active Substance: BUSPIRONE HYDROCHLORIDE
     Dosage: 15 MG, TID (EVERY 8 HOURS)
     Route: 065
  21. BUSPIRONE [Suspect]
     Active Substance: BUSPIRONE HYDROCHLORIDE
     Dosage: 5 MG, OD
     Route: 065
  22. ARIPIPRAZOLE. [Suspect]
     Active Substance: ARIPIPRAZOLE
     Indication: PARANOIA
     Dosage: 2 MG, OD (EVERY BEDTIME)
     Route: 065
  23. LAMOTRIGINE. [Suspect]
     Active Substance: LAMOTRIGINE
     Dosage: 100 MG, QD
     Route: 065
  24. LITHIUM. [Suspect]
     Active Substance: LITHIUM
     Indication: BIPOLAR DISORDER
     Dosage: 600 MG, OD (EVERY BEDTIME)
     Route: 065
  25. TESTOSTERONE. [Suspect]
     Active Substance: TESTOSTERONE
     Indication: BLOOD TESTOSTERONE DECREASED
     Dosage: UNK, OD (50 MG/5 G EVERY MORNING ON THE RIGHT UPPER EXTREMITY)
     Route: 061
  26. LURASIDONE [Suspect]
     Active Substance: LURASIDONE
     Indication: BIPOLAR DISORDER
     Dosage: 40 MG, OD (AFTER DINNER)
     Route: 065
  27. BUPROPION. [Suspect]
     Active Substance: BUPROPION
     Indication: MAJOR DEPRESSION
     Dosage: 150 MG, OD (EVERY MORNING)
     Route: 065
  28. BUSPIRONE [Suspect]
     Active Substance: BUSPIRONE HYDROCHLORIDE
     Dosage: 10 MG, OD
     Route: 065
  29. BUSPIRONE [Suspect]
     Active Substance: BUSPIRONE HYDROCHLORIDE
     Dosage: 17.5 MG, OD
     Route: 065
  30. BUPROPION. [Suspect]
     Active Substance: BUPROPION
     Dosage: 200 MG, OD (EVERY MORNING)
     Route: 065
  31. BUSPIRONE [Suspect]
     Active Substance: BUSPIRONE HYDROCHLORIDE
     Indication: MAJOR DEPRESSION
     Dosage: 15 MG, BID (EVERY 12 HOURS)
     Route: 065
  32. BUSPIRONE [Suspect]
     Active Substance: BUSPIRONE HYDROCHLORIDE
     Dosage: 7.5 MG, OD
     Route: 065
  33. BUSPIRONE [Suspect]
     Active Substance: BUSPIRONE HYDROCHLORIDE
     Dosage: 7.5 MG, BID (EVERY 12 HOURS)
     Route: 065

REACTIONS (1)
  - Gynaecomastia [Recovered/Resolved]
